FAERS Safety Report 14706700 (Version 6)
Quarter: 2022Q3

REPORT INFORMATION
  Report Type: Report from Study
  Country: JP (occurrence: JP)
  Receive Date: 20180402
  Receipt Date: 20220713
  Transmission Date: 20221027
  Serious: Yes (Other)
  Sender: FDA-Public Use
  Company Number: JP-SHIRE-JP201811496

PATIENT
  Age: 1 Year
  Sex: Male
  Weight: 5.9 kg

DRUGS (112)
  1. VELAGLUCERASE ALFA [Suspect]
     Active Substance: VELAGLUCERASE ALFA
     Indication: Gaucher^s disease type II
     Dosage: 60 IU/KG, 1X/2WKS
     Route: 042
     Dates: start: 20170420, end: 20170711
  2. VELAGLUCERASE ALFA [Suspect]
     Active Substance: VELAGLUCERASE ALFA
     Dosage: 100 IU/KG, 1X/2WKS
     Route: 042
     Dates: start: 20170725, end: 20171003
  3. VELAGLUCERASE ALFA [Suspect]
     Active Substance: VELAGLUCERASE ALFA
     Dosage: 800 INTERNATIONAL UNIT, 1X/2WKS
     Route: 065
     Dates: start: 20171016, end: 20180807
  4. VELAGLUCERASE ALFA [Suspect]
     Active Substance: VELAGLUCERASE ALFA
     Dosage: 1200 INTERNATIONAL UNIT, Q2WEEKS
     Route: 065
     Dates: start: 20180821
  5. VALPROATE SODIUM [Concomitant]
     Active Substance: VALPROATE SODIUM
     Indication: Product used for unknown indication
     Dosage: UNK, UNKNOWN
     Route: 065
  6. CLONAZEPAM [Concomitant]
     Active Substance: CLONAZEPAM
     Indication: Product used for unknown indication
     Dosage: UNK, UNKNOWN
     Route: 065
  7. LEVETIRACETAM [Concomitant]
     Active Substance: LEVETIRACETAM
     Indication: Product used for unknown indication
     Dosage: UNK, UNKNOWN
     Route: 065
  8. DANTRIUM [Concomitant]
     Active Substance: DANTROLENE SODIUM
     Indication: Gaucher^s disease type II
     Dosage: 5 MILLIGRAM, UNKNOWN
     Route: 048
     Dates: end: 20171031
  9. DANTRIUM [Concomitant]
     Active Substance: DANTROLENE SODIUM
     Dosage: 10 MILLIGRAM
     Route: 048
     Dates: start: 20171031, end: 20180226
  10. DANTRIUM [Concomitant]
     Active Substance: DANTROLENE SODIUM
     Dosage: 12.5 MILLIGRAM, UNKNOWN
     Route: 048
     Dates: start: 20180226, end: 20180607
  11. DANTRIUM [Concomitant]
     Active Substance: DANTROLENE SODIUM
     Dosage: 16.7 MILLIGRAM, UNKNOWN
     Route: 048
     Dates: start: 20180607, end: 20180619
  12. DANTRIUM [Concomitant]
     Active Substance: DANTROLENE SODIUM
     Dosage: 20 MILLIGRAM, UNKNOWN
     Route: 048
     Dates: start: 20180619, end: 20181002
  13. DANTRIUM [Concomitant]
     Active Substance: DANTROLENE SODIUM
     Dosage: 25 MILLIGRAM, UNKNOWN
     Route: 048
     Dates: start: 20181002
  14. BACLOFEN [Concomitant]
     Active Substance: BACLOFEN
     Indication: Product used for unknown indication
     Dosage: UNK, UNKNOWN
     Route: 065
  15. PHENOBAL                           /00023201/ [Concomitant]
     Indication: Gaucher^s disease type II
     Dosage: 6 ML, UNKNOWN
     Route: 048
     Dates: end: 20180206
  16. PHENOBAL                           /00023201/ [Concomitant]
     Dosage: 9 MILLILITER
     Route: 048
     Dates: start: 20180206, end: 20180610
  17. PHENOBAL                           /00023201/ [Concomitant]
     Dosage: 12 MILLILITER, UNKNOWN
     Route: 048
     Dates: start: 20180610, end: 20180722
  18. PHENOBAL                           /00023201/ [Concomitant]
     Dosage: 20 MILLILITER, UNKNOWN
     Route: 048
     Dates: start: 20180722, end: 20181018
  19. PHENOBAL                           /00023201/ [Concomitant]
     Dosage: 24 MILLILITER, UNKNOWN
     Route: 048
     Dates: start: 20181018, end: 20181025
  20. PHENOBAL                           /00023201/ [Concomitant]
     Dosage: 26 MILLILITER, UNKNOWN
     Route: 048
     Dates: start: 20181025, end: 20181113
  21. PHENOBAL                           /00023201/ [Concomitant]
     Dosage: 30 MILLILITER, UNKNOWN
     Route: 048
     Dates: start: 20181113, end: 20190310
  22. PHENOBAL                           /00023201/ [Concomitant]
     Dosage: 24 MILLILITER, UNKNOWN
     Route: 048
     Dates: start: 20190310
  23. ELIXIRMETHASONE [Concomitant]
     Indication: Gaucher^s disease type II
     Dosage: 6 ML, UNKNOWN
     Route: 048
  24. INCREMIN                           /00023544/ [Concomitant]
     Indication: Mineral supplementation
     Dosage: 3 ML, UNKNOWN
     Route: 048
  25. FAMOTIDINE [Concomitant]
     Active Substance: FAMOTIDINE
     Indication: Product used for unknown indication
     Dosage: 5 MG, UNKNOWN
     Route: 048
     Dates: end: 20180529
  26. FAMOTIDINE [Concomitant]
     Active Substance: FAMOTIDINE
     Dosage: 10 MG, UNKNOWN
     Route: 048
     Dates: start: 20180529
  27. MOSAPRIDE [Concomitant]
     Active Substance: MOSAPRIDE
     Indication: Product used for unknown indication
     Dosage: 1.5 MG, UNKNOWN
     Route: 048
     Dates: end: 20180529
  28. MOSAPRIDE [Concomitant]
     Active Substance: MOSAPRIDE
     Dosage: 5 MG, UNKNOWN
     Route: 048
     Dates: start: 20180529
  29. GABAPENTIN [Concomitant]
     Active Substance: GABAPENTIN
     Indication: Gaucher^s disease type II
     Dosage: 300 MG, UNKNOWN
     Route: 048
  30. GABAPENTIN [Concomitant]
     Active Substance: GABAPENTIN
     Dosage: 350 MG, UNKNOWN
     Route: 048
     Dates: start: 20170711, end: 20170725
  31. GABAPENTIN [Concomitant]
     Active Substance: GABAPENTIN
     Dosage: 375 MG, UNKNOWN
     Route: 048
     Dates: start: 20170725, end: 20170822
  32. GABAPENTIN [Concomitant]
     Active Substance: GABAPENTIN
     Dosage: 400 MG, UNKNOWN
     Route: 048
     Dates: start: 20170822, end: 20171017
  33. GABAPENTIN [Concomitant]
     Active Substance: GABAPENTIN
     Dosage: 300 MILLIGRAM
     Route: 048
     Dates: start: 20171017, end: 20171212
  34. GABAPENTIN [Concomitant]
     Active Substance: GABAPENTIN
     Dosage: 200 MILLIGRAM
     Route: 048
     Dates: start: 20171212, end: 20171226
  35. GABAPENTIN [Concomitant]
     Active Substance: GABAPENTIN
     Dosage: 150 MILLIGRAM
     Route: 048
     Dates: start: 20171226, end: 20180702
  36. GABAPENTIN [Concomitant]
     Active Substance: GABAPENTIN
     Dosage: 100 MILLIGRAM
     Route: 048
     Dates: start: 20180702, end: 20181019
  37. MIYA-BM [Concomitant]
     Active Substance: CLOSTRIDIUM BUTYRICUM SPORES STRAIN M-55
     Indication: Product used for unknown indication
     Dosage: 0.6 G, UNKNOWN
     Route: 048
  38. MIYA-BM [Concomitant]
     Active Substance: CLOSTRIDIUM BUTYRICUM SPORES STRAIN M-55
     Dosage: 1 G, UNKNOWN
     Route: 048
     Dates: start: 20170711, end: 20190319
  39. MIYA-BM [Concomitant]
     Active Substance: CLOSTRIDIUM BUTYRICUM SPORES STRAIN M-55
     Dosage: 1.5 G, UNKNOWN
     Route: 048
     Dates: start: 20190319
  40. LEVOCARNITINE [Concomitant]
     Active Substance: LEVOCARNITINE
     Indication: Prophylaxis
     Dosage: 3 ML, UNKNOWN
     Route: 048
     Dates: start: 20171017, end: 20171031
  41. LEVOCARNITINE [Concomitant]
     Active Substance: LEVOCARNITINE
     Dosage: 6 ML, UNKNOWN
     Route: 048
     Dates: start: 20171031
  42. CARBIDOPA\LEVODOPA [Concomitant]
     Active Substance: CARBIDOPA\LEVODOPA
     Indication: Gaucher^s disease type II
     Dosage: 40 MG, UNKNOWN
     Route: 048
     Dates: start: 20170808, end: 20170905
  43. CARBIDOPA\LEVODOPA [Concomitant]
     Active Substance: CARBIDOPA\LEVODOPA
     Dosage: 60 MG, UNKNOWN
     Route: 048
     Dates: start: 20170905, end: 20180109
  44. CARBIDOPA\LEVODOPA [Concomitant]
     Active Substance: CARBIDOPA\LEVODOPA
     Dosage: 30 MG, UNKNOWN
     Route: 048
     Dates: start: 20180109, end: 20180123
  45. TIZANIDINE [Concomitant]
     Active Substance: TIZANIDINE
     Indication: Gaucher^s disease type II
     Dosage: 0.5 MG, UNKNOWN
     Route: 048
     Dates: start: 20170822, end: 20171003
  46. TIZANIDINE [Concomitant]
     Active Substance: TIZANIDINE
     Dosage: 1 MG, UNKNOWN
     Route: 048
     Dates: start: 20171003, end: 20171020
  47. TIZANIDINE [Concomitant]
     Active Substance: TIZANIDINE
     Dosage: 2 MG, UNKNOWN
     Route: 048
     Dates: start: 20171020, end: 20180724
  48. TIZANIDINE [Concomitant]
     Active Substance: TIZANIDINE
     Dosage: 3 MG, UNKNOWN
     Route: 048
     Dates: start: 20180724, end: 20181002
  49. TIZANIDINE [Concomitant]
     Active Substance: TIZANIDINE
     Dosage: 5 MG, UNKNOWN
     Route: 048
     Dates: start: 20181002, end: 20181018
  50. TIZANIDINE [Concomitant]
     Active Substance: TIZANIDINE
     Dosage: 7.5 MG, UNKNOWN
     Route: 048
     Dates: start: 20181018
  51. DEPAKENE                           /00228501/ [Concomitant]
     Indication: Gaucher^s disease type II
     Dosage: 2.4 ML, UNKNOWN
     Route: 048
     Dates: start: 20171003, end: 20171017
  52. DEPAKENE                           /00228501/ [Concomitant]
     Dosage: 3 ML, UNKNOWN
     Route: 048
     Dates: start: 20171017, end: 20171031
  53. DEPAKENE                           /00228501/ [Concomitant]
     Dosage: 4.5 ML, UNKNOWN
     Route: 048
     Dates: start: 20171031, end: 20171212
  54. DEPAKENE                           /00228501/ [Concomitant]
     Dosage: 3 ML, UNKNOWN
     Route: 048
     Dates: start: 20171212, end: 20180206
  55. DEPAKENE                           /00228501/ [Concomitant]
     Dosage: 2.4 ML, UNKNOWN
     Route: 048
     Dates: start: 20180206, end: 20180226
  56. DEPAKENE                           /00228501/ [Concomitant]
     Dosage: 3 ML, UNKNOWN
     Route: 048
     Dates: start: 20180226, end: 20180724
  57. DEPAKENE                           /00228501/ [Concomitant]
     Dosage: 6 ML, UNKNOWN
     Route: 048
     Dates: start: 20180724, end: 20190319
  58. DEPAKENE                           /00228501/ [Concomitant]
     Dosage: 8 ML, UNKNOWN
     Route: 048
     Dates: start: 20190319
  59. BROMHEXINE [Concomitant]
     Active Substance: BROMHEXINE
     Indication: Prophylaxis
     Dosage: 1 ML, UNKNOWN
     Route: 055
  60. BROMHEXINE [Concomitant]
     Active Substance: BROMHEXINE
     Indication: Gaucher^s disease type II
  61. MEROPEN                            /01250501/ [Concomitant]
     Indication: Prophylaxis
     Dosage: 270 MG, UNKNOWN
     Route: 042
     Dates: start: 20171018
  62. MEROPEN                            /01250501/ [Concomitant]
     Indication: Product used for unknown indication
     Dosage: 0.5 G, UNKNOWN
     Route: 042
     Dates: start: 20180603, end: 20180604
  63. FLUMARIN                           /00780601/ [Concomitant]
     Indication: Prophylaxis
     Dosage: 0.23 GRAM, UNKNOWN
     Route: 042
     Dates: start: 20171017, end: 20171017
  64. CERCINE [Concomitant]
     Active Substance: DIAZEPAM
     Indication: Gaucher^s disease type II
     Dosage: 3 MILLILITER, UNKNOWN
     Route: 048
     Dates: start: 20171102, end: 20180109
  65. CERCINE [Concomitant]
     Active Substance: DIAZEPAM
     Dosage: 3 MILLILITER, UNKNOWN
     Route: 048
     Dates: start: 20180403, end: 20180719
  66. CERCINE [Concomitant]
     Active Substance: DIAZEPAM
     Dosage: 9 MILLILITER, UNKNOWN
     Route: 048
     Dates: start: 20180719, end: 20181016
  67. CERCINE [Concomitant]
     Active Substance: DIAZEPAM
     Dosage: 15 MILLILITER, UNKNOWN
     Route: 048
     Dates: start: 20181016
  68. RIVOTRIL [Concomitant]
     Active Substance: CLONAZEPAM
     Indication: Gaucher^s disease type II
     Dosage: 0.5 MILLIGRAM, UNKNOWN
     Route: 048
     Dates: start: 20171212, end: 20180220
  69. RIVOTRIL [Concomitant]
     Active Substance: CLONAZEPAM
     Dosage: 0.8 MILLIGRAM, UNKNOWN
     Route: 048
     Dates: start: 20180220, end: 20180529
  70. RIVOTRIL [Concomitant]
     Active Substance: CLONAZEPAM
     Dosage: 1 MILLIGRAM, UNKNOWN
     Route: 048
     Dates: start: 20180529, end: 20181018
  71. RIVOTRIL [Concomitant]
     Active Substance: CLONAZEPAM
     Dosage: 1.5 MILLIGRAM, UNKNOWN
     Route: 048
     Dates: start: 20181018, end: 20190310
  72. RIVOTRIL [Concomitant]
     Active Substance: CLONAZEPAM
     Dosage: 2 MILLIGRAM, UNKNOWN
     Route: 048
     Dates: start: 20190310
  73. LIORESAL [Concomitant]
     Active Substance: BACLOFEN
     Indication: Gaucher^s disease type II
     Dosage: 2 MILLIGRAM, UNKNOWN
     Route: 048
     Dates: start: 20171212, end: 20180724
  74. LIORESAL [Concomitant]
     Active Substance: BACLOFEN
     Dosage: 3 MILLIGRAM, UNKNOWN
     Route: 048
     Dates: start: 20180724, end: 20181018
  75. LIORESAL [Concomitant]
     Active Substance: BACLOFEN
     Dosage: 5 MILLIGRAM, UNKNOWN
     Route: 048
     Dates: start: 20181018
  76. BIFIDOBACTERIUM SPP. [Concomitant]
     Active Substance: BIFIDOBACTERIUM SPP.
     Indication: Product used for unknown indication
     Dosage: 1 GRAM, UNKNOWN
     Route: 048
     Dates: start: 20171212, end: 20190319
  77. BIFIDOBACTERIUM SPP. [Concomitant]
     Active Substance: BIFIDOBACTERIUM SPP.
     Dosage: 1.5 GRAM, UNKNOWN
     Route: 048
     Dates: start: 20190319
  78. CARBOCYSTEINE [Concomitant]
     Active Substance: CARBOCYSTEINE
     Indication: Gaucher^s disease type II
     Dosage: 300 MILLIGRAM, UNKNOWN
     Route: 048
     Dates: start: 20180109, end: 20190319
  79. CARBOCYSTEINE [Concomitant]
     Active Substance: CARBOCYSTEINE
     Dosage: 450 MILLIGRAM, UNKNOWN
     Route: 048
     Dates: start: 20190319
  80. LEVETIRACETAM [Concomitant]
     Active Substance: LEVETIRACETAM
     Indication: Gaucher^s disease type II
     Dosage: 200 MILLIGRAM, UNKNOWN
     Route: 048
     Dates: start: 20180302, end: 20180312
  81. LEVETIRACETAM [Concomitant]
     Active Substance: LEVETIRACETAM
     Dosage: 250 MILLIGRAM, UNKNOWN
     Route: 048
     Dates: start: 20180312, end: 20180529
  82. LEVETIRACETAM [Concomitant]
     Active Substance: LEVETIRACETAM
     Dosage: 400 MILLIGRAM, UNKNOWN
     Route: 048
     Dates: start: 20180529, end: 20180605
  83. LEVETIRACETAM [Concomitant]
     Active Substance: LEVETIRACETAM
     Dosage: 500 MILLIGRAM, UNKNOWN
     Route: 048
     Dates: start: 20180605, end: 20180724
  84. LEVETIRACETAM [Concomitant]
     Active Substance: LEVETIRACETAM
     Dosage: 600 MILLIGRAM, UNKNOWN
     Route: 048
     Dates: start: 20180724, end: 20181127
  85. LEVETIRACETAM [Concomitant]
     Active Substance: LEVETIRACETAM
     Dosage: 800 MILLIGRAM, UNKNOWN
     Route: 048
     Dates: start: 20181127, end: 20190108
  86. LEVETIRACETAM [Concomitant]
     Active Substance: LEVETIRACETAM
     Dosage: 900 MILLIGRAM, UNKNOWN
     Route: 048
     Dates: start: 20190108
  87. ROZEREM [Concomitant]
     Active Substance: RAMELTEON
     Indication: Product used for unknown indication
     Dosage: 1 MILLIGRAM, UNKNOWN
     Route: 048
  88. PIPERACILLIN NA [Concomitant]
     Indication: Product used for unknown indication
     Dosage: 900 MILLIGRAM, UNKNOWN
     Route: 042
     Dates: start: 20180221, end: 20180226
  89. DIETARY SUPPLEMENT\PROBIOTICS [Concomitant]
     Active Substance: DIETARY SUPPLEMENT\PROBIOTICS
     Indication: Product used for unknown indication
     Dosage: 1 GRAM, UNKNOWN
     Route: 048
     Dates: start: 20171212, end: 20180301
  90. FYCOMPA [Concomitant]
     Active Substance: PERAMPANEL
     Indication: Gaucher^s disease type II
     Dosage: 0.5 MILLIGRAM, UNKNOWN
     Dates: start: 20180614, end: 20180702
  91. FYCOMPA [Concomitant]
     Active Substance: PERAMPANEL
     Dosage: 0.75 MILLIGRAM, UNKNOWN
     Dates: start: 20180702, end: 20180724
  92. FYCOMPA [Concomitant]
     Active Substance: PERAMPANEL
     Dosage: 1 MILLIGRAM, UNKNOWN
     Dates: start: 20180724, end: 20181002
  93. FYCOMPA [Concomitant]
     Active Substance: PERAMPANEL
     Dosage: 1.5 MILLIGRAM, UNKNOWN
     Dates: start: 20181002, end: 20181019
  94. FYCOMPA [Concomitant]
     Active Substance: PERAMPANEL
     Dosage: 3 MILLIGRAM, UNKNOWN
     Dates: start: 20181019, end: 20181120
  95. FYCOMPA [Concomitant]
     Active Substance: PERAMPANEL
     Dosage: 4 MILLIGRAM, UNKNOWN
     Dates: start: 20181120, end: 20190108
  96. FYCOMPA [Concomitant]
     Active Substance: PERAMPANEL
     Dosage: 5 MILLIGRAM, UNKNOWN
     Dates: start: 20190108
  97. AMPICILLIN SODIUM\SULBACTAM SODIUM [Concomitant]
     Active Substance: AMPICILLIN SODIUM\SULBACTAM SODIUM
     Indication: Product used for unknown indication
     Dosage: 1.5 GRAM, UNKNOWN
     Route: 042
     Dates: start: 20180601, end: 20180603
  98. AMPICILLIN SODIUM\SULBACTAM SODIUM [Concomitant]
     Active Substance: AMPICILLIN SODIUM\SULBACTAM SODIUM
     Dosage: 2.25 GRAM, UNKNOWN
     Route: 042
     Dates: start: 20190222, end: 20190305
  99. AMPICILLIN SODIUM\SULBACTAM SODIUM [Concomitant]
     Active Substance: AMPICILLIN SODIUM\SULBACTAM SODIUM
     Dosage: 2.25 GRAM, UNKNOWN
     Route: 042
     Dates: start: 20190308, end: 20190311
  100. PHENOBARBITAL SODIUM [Concomitant]
     Active Substance: PHENOBARBITAL SODIUM
     Indication: Gaucher^s disease type II
     Dosage: 250 MILLIGRAM
     Route: 042
     Dates: start: 20180601, end: 20180601
  101. PHENOBARBITAL SODIUM [Concomitant]
     Active Substance: PHENOBARBITAL SODIUM
     Dosage: 250 MILLIGRAM
     Route: 042
     Dates: start: 20180606, end: 20180606
  102. VANCOMYCIN [Concomitant]
     Active Substance: VANCOMYCIN
     Indication: Product used for unknown indication
     Dosage: 0.4 GRAM, UNKNOWN
     Route: 042
     Dates: start: 20180603, end: 20180604
  103. VANCOMYCIN [Concomitant]
     Active Substance: VANCOMYCIN
     Dosage: 0.4 GRAM, UNKNOWN
     Route: 042
     Dates: start: 20180606, end: 20180607
  104. ZOSYN [Concomitant]
     Active Substance: PIPERACILLIN SODIUM\TAZOBACTAM SODIUM
     Indication: Product used for unknown indication
     Dosage: 3.375 GRAM, UNKNOWN
     Route: 042
     Dates: start: 20180604, end: 20180608
  105. FUROSEMIDE [Concomitant]
     Active Substance: FUROSEMIDE
     Indication: Product used for unknown indication
     Dosage: 10 MILLIGRAM, UNKNOWN
     Route: 048
     Dates: start: 20181026
  106. SPIRONOLACTONE [Concomitant]
     Active Substance: SPIRONOLACTONE
     Indication: Product used for unknown indication
     Dosage: 50 MILLIGRAM, UNKNOWN
     Route: 048
  107. ALUMINUM SILICATE [Concomitant]
     Active Substance: ALUMINUM SILICATE
     Indication: Product used for unknown indication
     Dosage: 1 GRAM, UNKNOWN
     Route: 048
     Dates: start: 20181127, end: 20190225
  108. TRICLOFOS SODIUM [Concomitant]
     Active Substance: TRICLOFOS SODIUM
     Indication: Product used for unknown indication
     Dosage: 10 MILLILITER, UNKNOWN
     Route: 048
     Dates: start: 20190306
  109. LASIX [Concomitant]
     Active Substance: FUROSEMIDE
     Indication: Product used for unknown indication
     Dosage: 5 MILLIGRAM, UNKNOWN
     Route: 042
     Dates: start: 20181025, end: 20181025
  110. CANRENOATE POTASSIUM [Concomitant]
     Active Substance: CANRENOATE POTASSIUM
     Indication: Product used for unknown indication
     Dosage: 50 MILLIGRAM, UNKNOWN
     Route: 042
     Dates: start: 20181025, end: 20181025
  111. ALBUMIN HUMAN [Concomitant]
     Active Substance: ALBUMIN HUMAN
     Indication: Product used for unknown indication
     Dosage: 4 GRAM, UNKNOWN
     Route: 042
     Dates: start: 20191025, end: 20191025
  112. HAINOSANKYUTO [Concomitant]
     Indication: Product used for unknown indication
     Dosage: 5.4 GRAM, UNKNOWN
     Route: 048
     Dates: start: 20190306

REACTIONS (10)
  - Cardiac failure congestive [Not Recovered/Not Resolved]
  - Pneumonia [Recovering/Resolving]
  - Pneumonia [Recovering/Resolving]
  - Pneumonia [Recovering/Resolving]
  - Pneumonia [Recovering/Resolving]
  - Hepatic function abnormal [Not Recovered/Not Resolved]
  - Diarrhoea [Not Recovered/Not Resolved]
  - Sleep disorder [Not Recovered/Not Resolved]
  - Anal fistula [Not Recovered/Not Resolved]
  - Product use issue [Recovered/Resolved]

NARRATIVE: CASE EVENT DATE: 20171212
